FAERS Safety Report 25149415 (Version 1)
Quarter: 2025Q2

REPORT INFORMATION
  Report Type: Spontaneous
  Country: US (occurrence: None)
  Receive Date: 20250401
  Receipt Date: 20250401
  Transmission Date: 20250717
  Serious: Yes (Death)
  Sender: FDA-CTU
  Company Number: None

PATIENT
  Age: 78 Year
  Sex: Male

DRUGS (8)
  1. LOKELMA [Suspect]
     Active Substance: SODIUM ZIRCONIUM CYCLOSILICATE
     Dates: start: 20230907, end: 20250202
  2. CINACALCET HYDROCHLORIDE [Suspect]
     Active Substance: CINACALCET HYDROCHLORIDE
     Dates: end: 20250202
  3. DILTIAZEM [Suspect]
     Active Substance: DILTIAZEM
     Dates: end: 20250202
  4. ELIQUIS [Suspect]
     Active Substance: APIXABAN
     Dates: end: 20250202
  5. METOPROLOL SUCCINATE [Suspect]
     Active Substance: METOPROLOL SUCCINATE
     Dates: end: 20250202
  6. SPIRONOLACTONE [Suspect]
     Active Substance: SPIRONOLACTONE
     Dates: end: 20250202
  7. VITAMIN D2 [Suspect]
     Active Substance: ERGOCALCIFEROL
     Dates: end: 20250202
  8. ATORVASTATIN [Suspect]
     Active Substance: ATORVASTATIN
     Dates: end: 20250202

REACTIONS (1)
  - Gastric cancer [None]

NARRATIVE: CASE EVENT DATE: 20250202
